FAERS Safety Report 9164671 (Version 1)
Quarter: 2013Q1

REPORT INFORMATION
  Report Type: Spontaneous
  Country: US (occurrence: None)
  Receive Date: 20130301
  Receipt Date: 20130301
  Transmission Date: 20140127
  Serious: Yes (Hospitalization)
  Sender: FDA-Public Use
  Company Number: SYM-2013-00955

PATIENT
  Sex: Female

DRUGS (1)
  1. XENAZINE (TETRABENAZINE) (TABLETS) (TETRABENAZINE) [Suspect]
     Indication: TARDIVE DYSKINESIA
     Dosage: 12.5 MG, 1 IN 1 D, ORAL
     Route: 048
     Dates: end: 20130207

REACTIONS (2)
  - Depression [None]
  - Suicidal ideation [None]
